FAERS Safety Report 14400426 (Version 1)
Quarter: 2018Q1

REPORT INFORMATION
  Report Type: Spontaneous
  Country: US (occurrence: US)
  Receive Date: 20180117
  Receipt Date: 20180117
  Transmission Date: 20180509
  Serious: Yes (Other)
  Sender: FDA-Public Use
  Company Number: US-JNJFOC-20171204238

PATIENT
  Sex: Female

DRUGS (2)
  1. XARELTO [Suspect]
     Active Substance: RIVAROXABAN
     Indication: PRODUCT USED FOR UNKNOWN INDICATION
     Route: 048
  2. SYNAREL [Concomitant]
     Active Substance: NAFARELIN ACETATE
     Route: 045

REACTIONS (3)
  - Menorrhagia [Unknown]
  - Haemoglobin decreased [Unknown]
  - Device expulsion [Unknown]
